FAERS Safety Report 8475060-1 (Version None)
Quarter: 2012Q2

REPORT INFORMATION
  Report Type: 
  Country: None (occurrence: None)
  Receive Date: 20120622
  Receipt Date: 20120608
  Transmission Date: 20120825
  Serious: Yes (Hospitalization)
  Sender: FDA-Public Use
  Company Number: TPA2012A00802

PATIENT
  Age: 62 Year
  Sex: Male

DRUGS (4)
  1. INDAPAMIDE [Concomitant]
  2. ADENURIC (FEBUXOSTAT) [Suspect]
     Indication: HYPERURICAEMIA
     Dosage: 80 MG (80 MG, 1 IN 1 D)
     Route: 048
     Dates: start: 20110601, end: 20111220
  3. FOSINOPRIL SODIUM [Concomitant]
  4. LASIX [Concomitant]

REACTIONS (2)
  - RENAL FAILURE ACUTE [None]
  - MICROSCOPIC POLYANGIITIS [None]
